FAERS Safety Report 4334625-9 (Version None)
Quarter: 2004Q1

REPORT INFORMATION
  Report Type: 
  Country: None (occurrence: None)
  Receive Date: 20040329
  Receipt Date: 20031230
  Transmission Date: 20041129
  Serious: No
  Sender: FDA-Public Use
  Company Number: 03P-163-0245945-00

PATIENT
  Age: 36 Year
  Sex: Female

DRUGS (8)
  1. HUMIRA [Suspect]
     Indication: RHEUMATOID ARTHRITIS
     Dosage: 40 MG, 1 IN 2 WK, SUBCUTANEOUS
     Route: 058
     Dates: start: 20030909
  2. HYDROCODONE [Concomitant]
  3. LITHIUM [Concomitant]
  4. TRAZODONE HCL [Concomitant]
  5. FOLIC ACID [Concomitant]
  6. AZATHIOPRINE [Concomitant]
  7. ZOVIA 1/35E-21 [Concomitant]
  8. METFORMIN [Concomitant]

REACTIONS (1)
  - ALOPECIA [None]
